FAERS Safety Report 5195301-6 (Version None)
Quarter: 2006Q4

REPORT INFORMATION
  Report Type: 
  Country: None (occurrence: None)
  Receive Date: 20061229
  Receipt Date: 20061212
  Transmission Date: 20070319
  Serious: Yes (Other)
  Sender: FDA-Public Use
  Company Number: US-PFIZER INC-2006153042

PATIENT
  Age: 47 Year
  Sex: Male

DRUGS (6)
  1. XANAX [Suspect]
     Indication: OBSESSIVE-COMPULSIVE DISORDER
     Dosage: DAILY DOSE:4.5MG
     Route: 048
  2. ZOLOFT [Suspect]
     Indication: OBSESSIVE-COMPULSIVE DISORDER
     Route: 048
     Dates: start: 19900101, end: 20000101
  3. NORTRIPTYLINE HCL [Suspect]
     Indication: OBSESSIVE-COMPULSIVE DISORDER
     Dosage: DAILY DOSE:10MG
     Route: 048
     Dates: start: 20040101, end: 20060801
  4. LORAZEPAM [Suspect]
     Indication: OBSESSIVE-COMPULSIVE DISORDER
     Route: 048
     Dates: start: 19800101, end: 19800101
  5. LUVOX [Suspect]
     Indication: OBSESSIVE-COMPULSIVE DISORDER
     Route: 048
     Dates: start: 19900101, end: 20000101
  6. PAXIL [Suspect]
     Indication: OBSESSIVE-COMPULSIVE DISORDER
     Route: 048
     Dates: start: 19900101, end: 20000101

REACTIONS (5)
  - EYE BURNS [None]
  - EYE DISORDER [None]
  - MACULOPATHY [None]
  - RETINAL ANOMALY CONGENITAL [None]
  - VISUAL DISTURBANCE [None]
